FAERS Safety Report 9031231 (Version 2)
Quarter: 2013Q3

REPORT INFORMATION
  Report Type: Spontaneous
  Country: JP (occurrence: JP)
  Receive Date: 20130123
  Receipt Date: 20130820
  Transmission Date: 20140515
  Serious: Yes (Hospitalization)
  Sender: FDA-Public Use
  Company Number: JP-009507513-1301JPN009733

PATIENT
  Age: 67 Year
  Sex: Female

DRUGS (5)
  1. TAFLOTAN [Suspect]
     Indication: NORMAL TENSION GLAUCOMA
     Dosage: 2 GTT, QD
     Route: 047
     Dates: start: 20110513, end: 20120801
  2. FLUOROMETHOLONE [Concomitant]
     Dosage: UNK
     Dates: start: 201109, end: 201210
  3. LEVOFLOXACIN [Concomitant]
     Dosage: UNK
     Dates: start: 201109, end: 201110
  4. BROMFENAC SODIUM [Concomitant]
     Dosage: UNK
     Dates: start: 201109, end: 201204
  5. BROMFENAC SODIUM [Concomitant]
     Dosage: UNK
     Dates: start: 20120921

REACTIONS (1)
  - Cystoid macular oedema [Recovering/Resolving]
